FAERS Safety Report 4440294-X (Version None)
Quarter: 2004Q3

REPORT INFORMATION
  Report Type: 
  Country: None (occurrence: None)
  Receive Date: 20040903
  Receipt Date: 20040827
  Transmission Date: 20050211
  Serious: Yes (Disabling)
  Sender: FDA-Public Use
  Company Number: PHFR2004GB03344

PATIENT
  Age: 33 Year
  Sex: Male

DRUGS (3)
  1. NEORAL [Suspect]
     Indication: PSORIASIS
     Dosage: 225 MG, BID
     Route: 048
     Dates: start: 20040101
  2. NEORAL [Suspect]
     Dosage: 125 MG, BID
     Route: 048
  3. NEORAL [Suspect]
     Dosage: 100 MG, QD
     Route: 048
     Dates: end: 20040811

REACTIONS (2)
  - BACK PAIN [None]
  - MUSCULAR WEAKNESS [None]
